FAERS Safety Report 23828269 (Version 1)
Quarter: 2024Q2

REPORT INFORMATION
  Report Type: Spontaneous
  Country: US (occurrence: US)
  Receive Date: 20240508
  Receipt Date: 20240508
  Transmission Date: 20240715
  Serious: Yes (Other)
  Sender: FDA-Public Use
  Company Number: US-ABBVIE-5747856

PATIENT
  Sex: Female

DRUGS (4)
  1. IRON DEXTRAN [Suspect]
     Active Substance: IRON DEXTRAN
     Indication: Mineral supplementation
     Route: 042
  2. SEVELAMER [Suspect]
     Active Substance: SEVELAMER
     Indication: Product used for unknown indication
     Dosage: TIME INTERVAL: 0.33333333 DAYS
     Route: 065
  3. VITAMIN D2 [Suspect]
     Active Substance: ERGOCALCIFEROL
     Indication: Vitamin supplementation
     Route: 065
  4. PARICALCITOL [Suspect]
     Active Substance: PARICALCITOL
     Indication: Mineral supplementation
     Dosage: 4 MICROGRAM
     Route: 065

REACTIONS (1)
  - Calciphylaxis [Unknown]
